FAERS Safety Report 8824837 (Version 1)
Quarter: 2012Q4

REPORT INFORMATION
  Report Type: 
  Country: FR (occurrence: FR)
  Receive Date: 20121004
  Receipt Date: 20121004
  Transmission Date: 20130627
  Serious: Yes (Life-Threatening, Hospitalization)
  Sender: FDA-Public Use
  Company Number: FR-JNJFOC-20120911960

PATIENT
  Age: 83 Year
  Sex: Female

DRUGS (11)
  1. DUROGESIC [Suspect]
     Indication: PAIN
     Route: 062
  2. TRANXENE [Suspect]
     Indication: PRODUCT USED FOR UNKNOWN INDICATION
     Route: 051
     Dates: start: 20120621, end: 20120622
  3. LASILIX [Concomitant]
     Route: 065
  4. AMLODIPINE [Concomitant]
     Route: 065
  5. AROMASINE [Concomitant]
     Route: 065
  6. GABAPENTINE [Concomitant]
     Route: 065
  7. ATENOLOL [Concomitant]
     Route: 065
  8. ALLOPURINOL [Concomitant]
     Route: 065
  9. CRESTOR [Concomitant]
     Route: 065
  10. CORDARONE [Concomitant]
     Route: 065
  11. HEPARIN [Concomitant]
     Route: 065

REACTIONS (1)
  - Coma [Recovered/Resolved]
